FAERS Safety Report 8227155-5 (Version None)
Quarter: 2012Q1

REPORT INFORMATION
  Report Type: 
  Country: None (occurrence: None)
  Receive Date: 20120322
  Receipt Date: 20120313
  Transmission Date: 20120608
  Serious: Yes (Hospitalization)
  Sender: FDA-Public Use
  Company Number: US-JNJFOC-20111009354

PATIENT
  Sex: Male

DRUGS (5)
  1. FISH OIL [Concomitant]
     Indication: SKIN CANCER
     Route: 048
  2. VITAMINE E [Concomitant]
     Indication: NUTRITIONAL SUPPORT
     Route: 065
  3. INVEGA SUSTENNA [Suspect]
     Indication: SCHIZOPHRENIA, PARANOID TYPE
     Route: 030
     Dates: start: 20100101, end: 20101201
  4. UNKNOWN MEDICATION [Concomitant]
     Indication: HEADACHE
     Route: 048
  5. VITAMINS NOS [Concomitant]
     Indication: NUTRITIONAL SUPPORT
     Route: 065

REACTIONS (3)
  - DELUSION [None]
  - TREATMENT NONCOMPLIANCE [None]
  - HALLUCINATION, AUDITORY [None]
